FAERS Safety Report 7177015 (Version 2)
Quarter: 2013Q4

REPORT INFORMATION
  Report Type: Report from Study
  Country: CA (occurrence: CA)
  Receive Date: 20091113
  Receipt Date: 20131121
  Transmission Date: 20140711
  Serious: Yes (Other)
  Sender: FDA-Public Use
  Company Number: PHHY2009CA47857

PATIENT
  Sex: Female

DRUGS (5)
  1. ACLASTA [Suspect]
     Indication: OSTEOPOROSIS
     Dosage: UNK
     Route: 042
     Dates: start: 20081105
  2. ACLASTA [Suspect]
     Dosage: UNK
     Route: 042
     Dates: start: 20091130
  3. ACLASTA [Suspect]
     Dosage: UNK
     Route: 042
     Dates: start: 20101028
  4. ACLASTA [Suspect]
     Dosage: UNK
     Route: 042
     Dates: start: 20111027
  5. ACLASTA [Suspect]
     Dosage: UNK
     Route: 042
     Dates: start: 20121010

REACTIONS (2)
  - Back disorder [Unknown]
  - Poor venous access [Unknown]
